FAERS Safety Report 6017135-2 (Version None)
Quarter: 2008Q4

REPORT INFORMATION
  Report Type: 
  Country: None (occurrence: None)
  Receive Date: 20081223
  Receipt Date: 20081209
  Transmission Date: 20090506
  Serious: Yes (Life-Threatening, Hospitalization)
  Sender: FDA-Public Use
  Company Number: IT-ROCHE-570948

PATIENT
  Sex: Male
  Weight: 72 kg

DRUGS (2)
  1. PEG-INTERFERON ALFA 2A (RO 25-8310) [Suspect]
     Route: 058
     Dates: start: 20060208, end: 20060503
  2. RIBAVIRIN [Suspect]
     Dosage: FREQUENCY REPORTED: 5 X DAY. ROUTE REPORTED AS ^OS^.
     Route: 065
     Dates: start: 20060208, end: 20060503

REACTIONS (2)
  - ACUTE ABDOMEN [None]
  - APPENDICITIS [None]
